FAERS Safety Report 6554068-7 (Version None)
Quarter: 2010Q1

REPORT INFORMATION
  Report Type: 
  Country: None (occurrence: None)
  Receive Date: 20100127
  Receipt Date: 20100118
  Transmission Date: 20100710
  Serious: Yes (Hospitalization, Disabling, Other)
  Sender: FDA-Public Use
  Company Number: US-ABBOTT-10P-163-0620100-00

PATIENT
  Sex: Female
  Weight: 49.94 kg

DRUGS (6)
  1. DEPAKOTE [Suspect]
     Indication: CONVULSION
     Dates: end: 19970101
  2. DILANTIN [Suspect]
     Indication: CONVULSION
     Route: 048
     Dates: start: 19930101
  3. DILANTIN [Suspect]
     Indication: EPILEPSY
  4. ATIVAN [Concomitant]
     Indication: DRUG USE FOR UNKNOWN INDICATION
     Dates: start: 19930101
  5. TRENTAL [Concomitant]
     Indication: DRUG USE FOR UNKNOWN INDICATION
     Dates: start: 19940101
  6. ACETYLSALICYLIC ACID [Concomitant]

REACTIONS (16)
  - ANEURYSM [None]
  - APNOEA [None]
  - BLOOD CALCIUM DECREASED [None]
  - BLOOD THYROID STIMULATING HORMONE INCREASED [None]
  - CEREBROVASCULAR ACCIDENT [None]
  - CONVULSION [None]
  - DRUG INEFFECTIVE [None]
  - GRAND MAL CONVULSION [None]
  - HEADACHE [None]
  - HYPERSENSITIVITY [None]
  - NAUSEA [None]
  - PHOTOPHOBIA [None]
  - SOMNOLENCE [None]
  - THYROIDECTOMY [None]
  - VOMITING [None]
  - WEIGHT DECREASED [None]
